FAERS Safety Report 23655490 (Version 2)
Quarter: 2024Q1

REPORT INFORMATION
  Report Type: Spontaneous
  Country: AU (occurrence: None)
  Receive Date: 20240320
  Receipt Date: 20240322
  Transmission Date: 20240410
  Serious: Yes (Death, Hospitalization, Disabling, Other)
  Sender: FDA-Public Use
  Company Number: 2024A068152

PATIENT
  Age: 73 Year
  Sex: Female

DRUGS (15)
  1. ROSUVASTATIN CALCIUM [Suspect]
     Active Substance: ROSUVASTATIN CALCIUM
     Indication: Product used for unknown indication
     Dosage: 1.25 MILLIGRAM(S) (1.25 MILLIGRAM(S), 1 IN 24 HOUR)
     Route: 048
  2. NEBIVOLOL [Suspect]
     Active Substance: NEBIVOLOL
     Indication: Product used for unknown indication
     Dosage: 1.25 MILLIGRAM(S) (1.25 MILLIGRAM(S), 1 IN 24 HOUR)
     Route: 048
  3. METHYLPREDNISOLONE ACEPONATE [Suspect]
     Active Substance: METHYLPREDNISOLONE ACEPONATE
     Indication: Product used for unknown indication
  4. MAGNESIUM ASPARTATE DIHYDRATE [Suspect]
     Active Substance: MAGNESIUM ASPARTATE DIHYDRATE
     Indication: Product used for unknown indication
     Route: 048
  5. FLOLAN [Suspect]
     Active Substance: EPOPROSTENOL SODIUM
     Indication: Pulmonary arterial hypertension
     Route: 042
     Dates: end: 202309
  6. FLOLAN [Suspect]
     Active Substance: EPOPROSTENOL SODIUM
     Indication: Cardiac failure
     Route: 042
     Dates: end: 202309
  7. OPSUMIT [Suspect]
     Active Substance: MACITENTAN
     Indication: Product used for unknown indication
     Dosage: 10.0 MILLIGRAM(S) (10 MILLIGRAM(S), 1 IN 24 HOUR)
     Dates: end: 202112
  8. PANTOPRAZOLE SODIUM [Suspect]
     Active Substance: PANTOPRAZOLE SODIUM
     Indication: Product used for unknown indication
     Dosage: 40.0 MILLIGRAM(S) (40 MILLIGRAM(S), 1 IN 24 HOUR)
     Route: 048
  9. PANTOPRAZOLE SODIUM [Suspect]
     Active Substance: PANTOPRAZOLE SODIUM
     Indication: Product used for unknown indication
     Dosage: 80.0 MILLIGRAM(S) (40 MILLIGRAM(S), 1 IN 12 HOUR)
     Route: 042
  10. FUROSEMIDE [Suspect]
     Active Substance: FUROSEMIDE
     Indication: Product used for unknown indication
     Dosage: 1) 10.0 MILLIGRAM(S) (20 MILLIGRAM(S), 1 IN 48 HOUR) 2) 20.0 MILLIGRAM(S) (40 MILLIGRAM(S), 1 IN ...
     Route: 048
  11. HEPARIN SODIUM [Suspect]
     Active Substance: HEPARIN SODIUM
     Indication: Product used for unknown indication
     Dosage: 10000 INTERNATIONAL UNIT(S) (5000 INTERNATIONAL UNIT(S), 1 IN 12 HOUR)
     Route: 058
  12. ACETAMINOPHEN [Suspect]
     Active Substance: ACETAMINOPHEN
     Indication: Product used for unknown indication
     Route: 048
  13. SODIUM ASCORBATE [Suspect]
     Active Substance: SODIUM ASCORBATE
     Indication: Product used for unknown indication
     Dosage: 2520 MILLIGRAM(S) (840 MILLIGRAM(S), 1 IN 8 HOUR)
     Route: 048
  14. FERROUS SULFATE\SODIUM ASCORBATE [Suspect]
     Active Substance: FERROUS SULFATE\SODIUM ASCORBATE
     Indication: Product used for unknown indication
     Dosage: 1.0 DOSAGE FORM (1 DOSAGE FORM, 1 IN 24 HOUR)
     Route: 048
  15. DOCUSATE SODIUM [Suspect]
     Active Substance: DOCUSATE SODIUM
     Indication: Product used for unknown indication

REACTIONS (6)
  - Pneumonia [Fatal]
  - Hypotension [Unknown]
  - Diarrhoea [Unknown]
  - Heart rate increased [Unknown]
  - Epistaxis [Unknown]
  - Loss of personal independence in daily activities [Unknown]

NARRATIVE: CASE EVENT DATE: 20230101
